FAERS Safety Report 6817114-9 (Version None)
Quarter: 2010Q2

REPORT INFORMATION
  Report Type: 
  Country: None (occurrence: None)
  Receive Date: 20100630
  Receipt Date: 20100616
  Transmission Date: 20101027
  Serious: Yes (Other)
  Sender: FDA-Public Use
  Company Number: 2010SP001764

PATIENT
  Age: 45 Year
  Sex: Female

DRUGS (3)
  1. ALVESCO [Suspect]
     Indication: ASTHMA
     Dosage: 320 UG; QD; INHALATION
     Route: 055
  2. BECLOMETHASONE DIPROPIONATE [Suspect]
  3. SERETIDE /01420901/ (SERETIDE /01420901/) [Suspect]

REACTIONS (1)
  - RASH [None]
